FAERS Safety Report 24594442 (Version 1)
Quarter: 2024Q4

REPORT INFORMATION
  Report Type: Spontaneous
  Country: US (occurrence: US)
  Receive Date: 20241108
  Receipt Date: 20241108
  Transmission Date: 20250114
  Serious: No
  Sender: NOVARTIS
  Company Number: US-002147023-NVSC2024US216651

PATIENT
  Sex: Female

DRUGS (3)
  1. MEKINIST [Suspect]
     Active Substance: TRAMETINIB DIMETHYL SULFOXIDE
     Indication: Langerhans^ cell histiocytosis
     Dosage: 0.5 MG, QD
     Route: 048
     Dates: start: 202410
  2. TAFINLAR [Suspect]
     Active Substance: DABRAFENIB MESYLATE
     Indication: Langerhans^ cell histiocytosis
     Dosage: 75 MG, QD
     Route: 048
     Dates: start: 202408
  3. TAFINLAR [Suspect]
     Active Substance: DABRAFENIB MESYLATE
     Dosage: 150 MG, QD
     Route: 065

REACTIONS (4)
  - Abdominal pain [Unknown]
  - Blood glucose increased [Unknown]
  - Pancreatic enzymes increased [Unknown]
  - Off label use [Unknown]
